FAERS Safety Report 23482622 (Version 1)
Quarter: 2024Q1

REPORT INFORMATION
  Report Type: Spontaneous
  Country: FR (occurrence: None)
  Receive Date: 20240205
  Receipt Date: 20240205
  Transmission Date: 20240410
  Serious: Yes (Hospitalization)
  Sender: FDA-Public Use
  Company Number: 2024A029067

PATIENT
  Age: 41 Day
  Sex: Female
  Weight: 3.3 kg

DRUGS (1)
  1. BEYFORTUS [Suspect]
     Active Substance: NIRSEVIMAB-ALIP
     Indication: Antiviral prophylaxis
     Dosage: 1 DF, TOTAL1.0DF ONCE/SINGLE ADMINISTRATION
     Route: 030
     Dates: start: 20231201, end: 20231201

REACTIONS (2)
  - Malaise [Recovered/Resolved]
  - Neonatal dyspnoea [Recovered/Resolved]

NARRATIVE: CASE EVENT DATE: 20231216
